FAERS Safety Report 5086098-9 (Version None)
Quarter: 2006Q3

REPORT INFORMATION
  Report Type: 
  Country: None (occurrence: None)
  Receive Date: 20060818
  Receipt Date: 20060811
  Transmission Date: 20061208
  Serious: Yes (Hospitalization, Other)
  Sender: FDA-Public Use
  Company Number: 2006-05-2320

PATIENT
  Age: 57 Year
  Sex: Female
  Weight: 68 kg

DRUGS (11)
  1. PEG-INTRON [Suspect]
     Indication: HEPATITIS C
     Dosage: 80 MCG*QW SUBCUTANEOUS
     Route: 058
     Dates: start: 20060307, end: 20060509
  2. PEG-INTRON [Suspect]
     Indication: HEPATITIS C
     Dosage: 80 MCG*QW SUBCUTANEOUS
     Route: 058
     Dates: start: 20060307, end: 20060530
  3. PEG-INTRON [Suspect]
     Indication: HEPATITIS C
     Dosage: 80 MCG*QW SUBCUTANEOUS
     Route: 058
     Dates: start: 20060524, end: 20060530
  4. REBETOL [Suspect]
     Indication: HEPATITIS C
     Dosage: 600 MG ORAL
     Route: 048
     Dates: start: 20060307, end: 20060509
  5. REBETOL [Suspect]
     Indication: HEPATITIS C
     Dosage: 600 MG ORAL
     Route: 048
     Dates: start: 20060307, end: 20060601
  6. REBETOL [Suspect]
     Indication: HEPATITIS C
     Dosage: 600 MG ORAL
     Route: 048
     Dates: start: 20060524, end: 20060601
  7. RABEPRAZOLE SODIUM [Concomitant]
  8. REMAMIPIDE TABLETS [Concomitant]
  9. BLADDERON TABLETS [Concomitant]
  10. ALOSENN GRANULES [Concomitant]
  11. SODIUM FERROUS CITRATE TABLETS [Concomitant]

REACTIONS (3)
  - CHOLECYSTITIS [None]
  - CHOLELITHIASIS [None]
  - LYMPHOCYTE STIMULATION TEST POSITIVE [None]
